FAERS Safety Report 8987979 (Version 3)
Quarter: 2013Q2

REPORT INFORMATION
  Report Type: Spontaneous
  Country: FR (occurrence: FR)
  Receive Date: 20121227
  Receipt Date: 20130523
  Transmission Date: 20140414
  Serious: Yes (Hospitalization)
  Sender: FDA-Public Use
  Company Number: FR-VERTEX PHARMACEUTICALS INC.-2012-026650

PATIENT
  Age: 66 Year
  Sex: Male
  Weight: 71 kg

DRUGS (6)
  1. INCIVO [Suspect]
     Indication: HEPATITIS C
     Dosage: 375 MG, QD
     Route: 048
     Dates: start: 20121023, end: 20130115
  2. PEGINTERFERON ALFA 2A [Suspect]
     Indication: HEPATITIS C
     Dosage: DOSAGE FORM: UNSPECIFIED
     Route: 048
     Dates: start: 20121023, end: 20130130
  3. RIBAVIRINE [Suspect]
     Indication: HEPATITIS C
     Dosage: DOSAGE FORM: UNSPECIFIED
     Route: 048
     Dates: start: 20121023, end: 20130130
  4. OLMETEC [Concomitant]
     Indication: HYPERTENSION
     Dosage: 10 MG, QD
  5. OLMETEC [Concomitant]
     Dosage: DOSAGE FORM: UNSPECIFIED
     Route: 048
  6. RILMENIDINE [Concomitant]
     Indication: HYPERTENSION
     Dosage: DOSAGE FORM: UNSPECIFIED
     Route: 048

REACTIONS (3)
  - Coronary artery occlusion [Recovered/Resolved]
  - Anaemia [Recovered/Resolved]
  - Asthenia [Unknown]
